FAERS Safety Report 7702362-6 (Version None)
Quarter: 2011Q3

REPORT INFORMATION
  Report Type: 
  Country: None (occurrence: None)
  Receive Date: 20110822
  Receipt Date: 20110817
  Transmission Date: 20111222
  Serious: Yes (Life-Threatening, Other)
  Sender: FDA-Public Use
  Company Number: US-ASTRAZENECA-2011SE49220

PATIENT
  Sex: Female

DRUGS (3)
  1. SEROQUEL [Suspect]
     Route: 048
  2. SEROQUEL [Suspect]
     Indication: DEMENTIA
     Route: 048
  3. SEROQUEL [Suspect]
     Route: 048

REACTIONS (3)
  - OFF LABEL USE [None]
  - COMA [None]
  - IMPAIRED WORK ABILITY [None]
